FAERS Safety Report 5478891-5 (Version None)
Quarter: 2007Q4

REPORT INFORMATION
  Report Type: 
  Country: None (occurrence: None)
  Receive Date: 20071002
  Receipt Date: 20070907
  Transmission Date: 20080405
  Serious: Yes (Hospitalization)
  Sender: FDA-Public Use
  Company Number: 2006US000486

PATIENT
  Age: 47 Year
  Sex: Male

DRUGS (11)
  1. PROGRAF [Suspect]
     Indication: RENAL TRANSPLANT
     Dosage: 1 MG, BID, ORAL
     Route: 048
     Dates: start: 20050408
  2. MYCOPHENOLATE MOFETIL [Suspect]
     Indication: RENAL TRANSPLANT
     Dosage: 1000 MG, BID, ORAL
     Route: 048
     Dates: start: 20050408
  3. LOVASTATIN [Concomitant]
  4. MIACALCIN [Concomitant]
  5. CALCITRIOL [Concomitant]
  6. VALCYTE [Concomitant]
  7. MULTIVITAMIN [Concomitant]
  8. PROTONIX [Concomitant]
  9. ARANESP [Concomitant]
  10. ATENOLOL [Concomitant]
  11. FOLIC ACID [Concomitant]

REACTIONS (3)
  - HAEMOGLOBIN DECREASED [None]
  - ILEUS [None]
  - NEPHRECTOMY [None]
